FAERS Safety Report 8130463-X (Version None)
Quarter: 2012Q1

REPORT INFORMATION
  Report Type: 
  Country: None (occurrence: None)
  Receive Date: 20120210
  Receipt Date: 20120206
  Transmission Date: 20120608
  Serious: Yes (Hospitalization)
  Sender: FDA-Public Use
  Company Number: FR-MERCK-1202FRA00048

PATIENT
  Age: 94 Year
  Sex: Female

DRUGS (4)
  1. FOSAMAX PLUS D [Suspect]
     Indication: OSTEOPOROSIS
     Route: 048
     Dates: start: 20100101
  2. CALCIFEDIOL [Concomitant]
     Route: 065
  3. PHLOROGLUCINOL AND TRIMETHYLPHLOROGLUCINOL [Concomitant]
     Route: 065
  4. CALCIUM CARBONATE [Concomitant]
     Route: 065

REACTIONS (6)
  - DYSPNOEA [None]
  - ABDOMINAL PAIN UPPER [None]
  - SYNCOPE [None]
  - GENERAL PHYSICAL HEALTH DETERIORATION [None]
  - PAIN [None]
  - DYSPHAGIA [None]
